FAERS Safety Report 5087520-4 (Version None)
Quarter: 2006Q3

REPORT INFORMATION
  Report Type: 
  Country: None (occurrence: None)
  Receive Date: 20060824
  Receipt Date: 20060822
  Transmission Date: 20061208
  Serious: Yes (Other)
  Sender: FDA-Public Use
  Company Number: US-GLAXOSMITHKLINE-A0617685A

PATIENT
  Age: 89 Year
  Sex: Female

DRUGS (8)
  1. AVANDAMET [Suspect]
     Route: 048
  2. CYMBALTA [Concomitant]
  3. SYNTHROID [Concomitant]
  4. WATER PILL [Concomitant]
  5. VITAMINS [Concomitant]
  6. POTASSIUM [Concomitant]
  7. ASPIRIN [Concomitant]
  8. FORTEO [Concomitant]

REACTIONS (2)
  - DIABETIC NEUROPATHY [None]
  - DYSPEPSIA [None]
